FAERS Safety Report 18495250 (Version 4)
Quarter: 2022Q1

REPORT INFORMATION
  Report Type: Spontaneous
  Country: FR (occurrence: FR)
  Receive Date: 20201112
  Receipt Date: 20220317
  Transmission Date: 20220423
  Serious: Yes (Other)
  Sender: FDA-Public Use
  Company Number: FR-MYLANLABS-2020M1091395

PATIENT
  Age: 49 Year
  Sex: Female
  Weight: 60 kg

DRUGS (2)
  1. ROSUVASTATIN [Suspect]
     Active Substance: ROSUVASTATIN
     Indication: Hypercholesterolaemia
     Dosage: 5 MILLIGRAM, ONCE A DAY
     Route: 048
     Dates: start: 2014, end: 2018
  2. CHLORMADINONE [Concomitant]
     Active Substance: CHLORMADINONE
     Indication: Endometriosis
     Dosage: UNK (FOR SEVERAL YEARS)
     Route: 065

REACTIONS (2)
  - Ulnar tunnel syndrome [Recovered/Resolved]
  - Mononeuropathy [Recovered/Resolved]

NARRATIVE: CASE EVENT DATE: 20181001
